APPROVED DRUG PRODUCT: BROMPHENIRAMINE MALEATE, PSEUDOEPHEDRINE HYDROCHLORIDE AND DEXTROMETHORPHAN HYDROBROMIDE
Active Ingredient: BROMPHENIRAMINE MALEATE; DEXTROMETHORPHAN HYDROBROMIDE; PSEUDOEPHEDRINE HYDROCHLORIDE
Strength: 2MG/5ML;10MG/5ML;30MG/5ML
Dosage Form/Route: SYRUP;ORAL
Application: A205112 | Product #001
Applicant: TARO PHARMACEUTICAL INDUSTRIES LTD
Approved: Feb 27, 2017 | RLD: No | RS: No | Type: DISCN